FAERS Safety Report 9485724 (Version 1)
Quarter: 2013Q3

REPORT INFORMATION
  Report Type: Spontaneous
  Country: US (occurrence: None)
  Receive Date: 20130827
  Receipt Date: 20130827
  Transmission Date: 20140515
  Serious: No
  Sender: FDA-Public Use
  Company Number: None

PATIENT
  Sex: 0

DRUGS (9)
  1. COUMADIN [Suspect]
     Indication: ATRIAL FIBRILLATION
     Dosage: SNF
     Route: 048
  2. DIGOXIN [Concomitant]
  3. PULMOZYME [Concomitant]
  4. METOPROLOL [Concomitant]
  5. MIRTAZAPINE [Concomitant]
  6. MVI [Concomitant]
  7. SEVELAMER [Concomitant]
  8. ZOCOR [Concomitant]
  9. ZOLPIDEM [Concomitant]

REACTIONS (4)
  - Haemothorax [None]
  - Haematochezia [None]
  - Haemoptysis [None]
  - Sepsis [None]
